FAERS Safety Report 5530960-7 (Version None)
Quarter: 2007Q4

REPORT INFORMATION
  Report Type: 
  Country: None (occurrence: None)
  Receive Date: 20071130
  Receipt Date: 20071119
  Transmission Date: 20080405
  Serious: Yes (Life-Threatening, Hospitalization)
  Sender: FDA-Public Use
  Company Number: PFIZER INC-2007091933

PATIENT
  Sex: Male
  Weight: 92.5 kg

DRUGS (12)
  1. SUTENT [Suspect]
     Indication: PROSTATE CANCER
     Dosage: DAILY DOSE:50MG-FREQ:DAILY
     Route: 048
  2. LUPRON [Concomitant]
  3. PROZAC [Concomitant]
  4. COMPAZINE [Concomitant]
  5. PREDNISONE TAB [Concomitant]
  6. POTASSIUM CHLORIDE [Concomitant]
  7. MS CONTIN [Concomitant]
  8. MSIR [Concomitant]
  9. ZOMETA [Concomitant]
  10. LORTAB [Concomitant]
  11. COUMADIN [Concomitant]
     Route: 048
  12. HEPARIN [Concomitant]
     Dates: start: 20071101, end: 20071106

REACTIONS (3)
  - PAIN [None]
  - PULMONARY THROMBOSIS [None]
  - PYREXIA [None]
